FAERS Safety Report 21528143 (Version 1)
Quarter: 2022Q4

REPORT INFORMATION
  Report Type: Spontaneous
  Country: US (occurrence: US)
  Receive Date: 20221031
  Receipt Date: 20221031
  Transmission Date: 20230113
  Serious: Yes (Other)
  Sender: FDA-Public Use
  Company Number: US-ASTELLAS-2022US038416

PATIENT
  Age: 7 Decade
  Sex: Male

DRUGS (4)
  1. LEXISCAN [Suspect]
     Active Substance: REGADENOSON
     Indication: Cardiac stress test
     Dosage: 0.4 MG, UNKNOWN FREQ.
     Route: 042
  2. LEXISCAN [Suspect]
     Active Substance: REGADENOSON
     Indication: Cardiac stress test
     Dosage: 0.4 MG, UNKNOWN FREQ.
     Route: 042
  3. LEXISCAN [Suspect]
     Active Substance: REGADENOSON
     Indication: Cardiac stress test
     Dosage: 0.4 MG, UNKNOWN FREQ.
     Route: 042
  4. LEXISCAN [Suspect]
     Active Substance: REGADENOSON
     Indication: Cardiac stress test
     Dosage: 0.4 MG, UNKNOWN FREQ.
     Route: 042

REACTIONS (1)
  - Electrocardiogram RR interval prolonged [Recovered/Resolved]
